FAERS Safety Report 7126105-2 (Version None)
Quarter: 2010Q4

REPORT INFORMATION
  Report Type: 
  Country: None (occurrence: None)
  Receive Date: 20101129
  Receipt Date: 20101118
  Transmission Date: 20110411
  Serious: Yes (Hospitalization)
  Sender: FDA-Public Use
  Company Number: JP-ROCHE-743060

PATIENT
  Age: 39 Year
  Sex: Male

DRUGS (5)
  1. TAMIFLU [Suspect]
     Indication: INFLUENZA
     Route: 048
     Dates: start: 20101113
  2. CLARITHROMYCIN [Concomitant]
     Dosage: DOSAGE IS UNCERTAIN.
     Route: 048
  3. MUCOSOLVAN [Concomitant]
     Dosage: DOSAGE IS UNCERTAIN.
     Route: 048
  4. LOXONIN [Concomitant]
     Dosage: DOSAGE IS UNCERTAIN.
     Route: 048
  5. VOLTAREN [Concomitant]
     Dosage: DOSAGE IS UNCERTAIN, FORM: TAPE.
     Route: 062

REACTIONS (2)
  - HYPOAESTHESIA [None]
  - PARALYSIS [None]
